FAERS Safety Report 24152378 (Version 1)
Quarter: 2024Q3

REPORT INFORMATION
  Report Type: Spontaneous
  Country: US (occurrence: US)
  Receive Date: 20240730
  Receipt Date: 20240730
  Transmission Date: 20241017
  Serious: Yes (Other)
  Sender: BAYER
  Company Number: US-BAYER-2024A109091

PATIENT
  Sex: Male

DRUGS (1)
  1. NUBEQA [Suspect]
     Active Substance: DAROLUTAMIDE
     Dosage: UNK

REACTIONS (2)
  - Seizure [Unknown]
  - Craniocerebral injury [None]

NARRATIVE: CASE EVENT DATE: 20240128
